FAERS Safety Report 19752628 (Version 5)
Quarter: 2021Q3

REPORT INFORMATION
  Report Type: Report from Study
  Country: PL (occurrence: PL)
  Receive Date: 20210826
  Receipt Date: 20210921
  Transmission Date: 20211014
  Serious: Yes (Hospitalization, Other)
  Sender: FDA-Public Use
  Company Number: PL-CELGENEUS-POL-20210807044

PATIENT
  Sex: Male

DRUGS (8)
  1. DITROPAN [Concomitant]
     Active Substance: OXYBUTYNIN CHLORIDE
     Indication: MICTURITION URGENCY
     Dosage: 5 MILLIGRAM
     Route: 048
     Dates: start: 20170331
  2. OZANIMOD. [Suspect]
     Active Substance: OZANIMOD
     Route: 048
     Dates: start: 20210825
  3. SPERMICIDE [Concomitant]
     Indication: CONTRACEPTION
     Dosage: 1 (OTHER)
     Route: 050
  4. OZANIMOD. [Suspect]
     Active Substance: OZANIMOD
     Route: 048
     Dates: start: 2021, end: 20210817
  5. CARZAP [Concomitant]
     Indication: HYPERTENSION
     Dosage: 8 MILLIGRAM
     Route: 048
  6. SILDENAFIL. [Concomitant]
     Active Substance: SILDENAFIL
     Indication: SEXUAL DYSFUNCTION
     Dosage: 50 MILLIGRAM
     Route: 048
     Dates: start: 20181110
  7. OZANIMOD. [Suspect]
     Active Substance: OZANIMOD
     Indication: MULTIPLE SCLEROSIS
     Route: 048
     Dates: start: 20160409, end: 20210326
  8. HEPATIL [Concomitant]
     Indication: AMINO ACID LEVEL INCREASED
     Dosage: 150 MILLIGRAM
     Route: 048
     Dates: start: 20190601

REACTIONS (1)
  - Basal cell carcinoma [Recovered/Resolved]

NARRATIVE: CASE EVENT DATE: 20210817
